FAERS Safety Report 8443226-2 (Version None)
Quarter: 2012Q2

REPORT INFORMATION
  Report Type: 
  Country: None (occurrence: None)
  Receive Date: 20120617
  Receipt Date: 20120607
  Transmission Date: 20120825
  Serious: Yes (Other)
  Sender: FDA-Public Use
  Company Number: IT-TEVA-342751ISR

PATIENT
  Sex: Female

DRUGS (1)
  1. FLUOROURACIL [Suspect]

REACTIONS (1)
  - DYSPHAGIA [None]
